FAERS Safety Report 14849398 (Version 1)
Quarter: 2018Q2

REPORT INFORMATION
  Report Type: Spontaneous
  Country: CL (occurrence: CL)
  Receive Date: 20180504
  Receipt Date: 20180504
  Transmission Date: 20180711
  Serious: Yes (Other)
  Sender: FDA-Public Use
  Company Number: CL-BAUSCH-BL-2018-013244

PATIENT
  Age: 62 Year
  Sex: Female

DRUGS (1)
  1. NORMIX [Suspect]
     Active Substance: RIFAXIMIN
     Indication: IRRITABLE BOWEL SYNDROME
     Route: 048

REACTIONS (2)
  - Escherichia urinary tract infection [Unknown]
  - Intentional product use issue [Unknown]
